FAERS Safety Report 6460088-3 (Version None)
Quarter: 2009Q4

REPORT INFORMATION
  Report Type: 
  Country: None (occurrence: None)
  Receive Date: 20091129
  Receipt Date: 20091124
  Transmission Date: 20100525
  Serious: Yes (Death, Other)
  Sender: FDA-Public Use
  Company Number: PHHY2009BR51799

PATIENT
  Sex: Male

DRUGS (4)
  1. DIOVAN [Suspect]
     Indication: HYPERTENSION
     Dosage: UNK
     Route: 048
     Dates: start: 20030101
  2. LASIX [Concomitant]
     Indication: HYPERTENSION
     Dosage: 1 TABLET PER DAY
     Route: 048
  3. ANCORON [Concomitant]
     Indication: HYPERTENSION
     Dosage: 2 TABLETS PER DAY
     Route: 048
  4. CILOSTAZOL [Concomitant]
     Indication: PERIPHERAL VASCULAR DISORDER
     Dosage: 2 TABLETS PER DAY

REACTIONS (4)
  - DYSPNOEA [None]
  - PNEUMONIA [None]
  - RESPIRATORY ARREST [None]
  - SEPTIC SHOCK [None]
